FAERS Safety Report 7905944-1 (Version None)
Quarter: 2011Q4

REPORT INFORMATION
  Report Type: 
  Country: None (occurrence: None)
  Receive Date: 20111110
  Receipt Date: 20111102
  Transmission Date: 20120403
  Serious: Yes (Life-Threatening, Hospitalization)
  Sender: FDA-Public Use
  Company Number: JP-BAYER-2011-082817

PATIENT
  Age: 63 Year
  Sex: Male
  Weight: 55 kg

DRUGS (10)
  1. LIVACT [Concomitant]
     Indication: BLOOD ALBUMIN DECREASED
     Dosage: DAILY DOSE 12.45 G
     Route: 048
  2. FAMOTIDINE [Concomitant]
     Indication: GASTRIC ULCER
     Dosage: DAILY DOSE 40 MG
     Route: 048
     Dates: end: 20110816
  3. DIOVAN [Concomitant]
     Indication: BLOOD PRESSURE MANAGEMENT
     Dosage: DAILY DOSE 80 MG
     Route: 048
  4. PROHEPARUM [Concomitant]
     Indication: LIVER DISORDER
     Dosage: DAILY DOSE 3 DF
     Route: 048
     Dates: end: 20110816
  5. NEXAVAR [Suspect]
     Dosage: DAILY DOSE 600 MG
     Route: 048
     Dates: start: 20110413, end: 20110809
  6. MIRIPLA [Suspect]
     Indication: THERAPEUTIC EMBOLISATION
     Dosage: DAILY DOSE 120 MG
     Route: 013
     Dates: start: 20110816, end: 20110816
  7. AMLODIPINE [Concomitant]
     Indication: BLOOD PRESSURE MANAGEMENT
     Dosage: DAILY DOSE 2.5 MG
     Route: 048
     Dates: start: 20110330, end: 20110816
  8. NEXAVAR [Suspect]
     Indication: HEPATIC NEOPLASM MALIGNANT
     Dosage: DAILY DOSE 400 MG
     Route: 048
     Dates: start: 20110322, end: 20110413
  9. URSO 250 [Concomitant]
     Indication: LIVER DISORDER
     Dosage: DAILY DOSE 300 MG
     Route: 048
  10. LACTULOSE [Concomitant]
     Indication: HEPATIC ENCEPHALOPATHY PROPHYLAXIS
     Dosage: DAILY DOSE 18 G
     Route: 048

REACTIONS (6)
  - ABDOMINAL PAIN UPPER [None]
  - HEPATIC INFARCTION [None]
  - ASCITES [None]
  - PLEURAL EFFUSION [None]
  - HEPATIC ENCEPHALOPATHY [None]
  - JAUNDICE [None]
